FAERS Safety Report 13676684 (Version 3)
Quarter: 2018Q2

REPORT INFORMATION
  Report Type: Spontaneous
  Country: US (occurrence: US)
  Receive Date: 20170622
  Receipt Date: 20180503
  Transmission Date: 20180711
  Serious: Yes (Other)
  Sender: FDA-Public Use
  Company Number: US-PFIZER INC-2017267584

PATIENT
  Age: 61 Year
  Sex: Female

DRUGS (1)
  1. XELJANZ XR [Suspect]
     Active Substance: TOFACITINIB CITRATE
     Dosage: 11 MG, UNK
     Dates: start: 201602

REACTIONS (5)
  - Skin infection [Unknown]
  - Fall [Unknown]
  - Gait disturbance [Unknown]
  - Upper limb fracture [Unknown]
  - Cellulitis [Unknown]

NARRATIVE: CASE EVENT DATE: 20170715
